FAERS Safety Report 10158051 (Version 1)
Quarter: 2014Q2

REPORT INFORMATION
  Report Type: Spontaneous
  Country: PE (occurrence: PE)
  Receive Date: 20140507
  Receipt Date: 20140507
  Transmission Date: 20141212
  Serious: Yes (Other)
  Sender: FDA-Public Use
  Company Number: PE-PFIZER INC-2014123832

PATIENT
  Age: 61 Year
  Sex: Female

DRUGS (1)
  1. NORVASC [Suspect]
     Dosage: 5 MG, 1X/DAY
     Route: 048

REACTIONS (1)
  - Kidney infection [Not Recovered/Not Resolved]
